FAERS Safety Report 8419762 (Version 2)
Quarter: 2014Q1

REPORT INFORMATION
  Report Type: Spontaneous
  Country: CN (occurrence: None)
  Receive Date: 20120207
  Receipt Date: 20140311
  Transmission Date: 20141002
  Serious: Yes (Death, Other)
  Sender: FDA-Public Use
  Company Number: CN-JNJFOC-20120103373

PATIENT
  Age: 44 Year
  Sex: Female

DRUGS (1)
  1. DACOGEN [Suspect]
     Indication: ACUTE MYELOID LEUKAEMIA
     Dosage: 120 MG/M2, 1 IN 1 DAY, INTRAVENOUS
     Route: 042

REACTIONS (4)
  - Haematotoxicity [None]
  - Neoplasm progression [None]
  - Acute myeloid leukaemia [None]
  - Malignant neoplasm progression [None]
